FAERS Safety Report 18898475 (Version 1)
Quarter: 2021Q1

REPORT INFORMATION
  Report Type: Spontaneous
  Country: GB (occurrence: GB)
  Receive Date: 20210216
  Receipt Date: 20210216
  Transmission Date: 20210420
  Serious: No
  Sender: FDA-Public Use
  Company Number: GB-ALKEM LABORATORIES LIMITED-GB-ALKEM-2020-08464

PATIENT
  Sex: Female

DRUGS (2)
  1. PREGABALIN. [Suspect]
     Active Substance: PREGABALIN
     Indication: PAIN
     Dosage: 75 MILLIGRAM
     Route: 048
  2. OXYCODONE [Concomitant]
     Active Substance: OXYCODONE
     Indication: PAIN
     Dosage: UNK
     Route: 048

REACTIONS (5)
  - Somnolence [Recovering/Resolving]
  - Diabetic ulcer [Recovering/Resolving]
  - Malaise [Recovering/Resolving]
  - Drug ineffective [Unknown]
  - Condition aggravated [Recovering/Resolving]
